FAERS Safety Report 19098742 (Version 2)
Quarter: 2021Q3

REPORT INFORMATION
  Report Type: Report from Study
  Country: ES (occurrence: ES)
  Receive Date: 20210406
  Receipt Date: 20210908
  Transmission Date: 20211014
  Serious: Yes (Hospitalization, Other)
  Sender: FDA-Public Use
  Company Number: ES-TAKEDA-2021TUS014254

PATIENT
  Sex: Male

DRUGS (17)
  1. EBASTINA [Concomitant]
     Active Substance: EBASTINE
     Dosage: UNK
  2. VEDOLIZUMAB [Suspect]
     Active Substance: VEDOLIZUMAB
     Indication: INFLAMMATORY BOWEL DISEASE
     Dosage: UNK
     Route: 042
     Dates: start: 20180522, end: 20181023
  3. INFLIXIMAB [Suspect]
     Active Substance: INFLIXIMAB
     Indication: PRODUCT USED FOR UNKNOWN INDICATION
     Dosage: UNK
     Route: 065
     Dates: start: 20200623, end: 20200623
  4. PAROMOMYCIN [Concomitant]
     Active Substance: PAROMOMYCIN
     Dosage: 500 MILLIGRAM, TID
  5. OTILONIUM BROMIDE [Concomitant]
     Active Substance: OTILONIUM BROMIDE
     Dosage: UNK
  6. FIDAXOMICIN [Concomitant]
     Active Substance: FIDAXOMICIN
     Dosage: UNK
  7. ACICLOVIR [Concomitant]
     Active Substance: ACYCLOVIR
     Dosage: UNK
  8. METRONIDAZOLE. [Concomitant]
     Active Substance: METRONIDAZOLE
     Dosage: UNK
  9. PREDNISONE. [Concomitant]
     Active Substance: PREDNISONE
     Dosage: UNK
  10. VANCOMYCIN [Concomitant]
     Active Substance: VANCOMYCIN
     Dosage: UNK
  11. OMEPRAZOL [OMEPRAZOLE] [Concomitant]
     Active Substance: OMEPRAZOLE
     Dosage: UNK
  12. BECLOMETHASONE DIPROPIONATE [BECLOMETASONE DIPROPIONATE] [Concomitant]
     Active Substance: BECLOMETHASONE DIPROPIONATE
     Dosage: UNK
  13. MESALAZINE [Concomitant]
     Active Substance: MESALAMINE
     Dosage: UNK
  14. VALGANCICLOVIR. [Concomitant]
     Active Substance: VALGANCICLOVIR
     Dosage: UNK
  15. TOFACITINIB [Concomitant]
     Active Substance: TOFACITINIB
     Dosage: UNK
  16. PENTASA [Concomitant]
     Active Substance: MESALAMINE
     Dosage: UNK
  17. CALCIUM CARBONATE. [Concomitant]
     Active Substance: CALCIUM CARBONATE
     Dosage: UNK

REACTIONS (7)
  - Cytomegalovirus enteritis [Recovered/Resolved]
  - Hypersensitivity [Recovered/Resolved]
  - Arthralgia [Recovered/Resolved]
  - Dientamoeba infection [Recovered/Resolved]
  - Otitis externa [Recovered/Resolved]
  - Herpes zoster [Recovered/Resolved]
  - Clostridium difficile colitis [Recovered/Resolved]

NARRATIVE: CASE EVENT DATE: 20200514
